FAERS Safety Report 6755845-X (Version None)
Quarter: 2010Q2

REPORT INFORMATION
  Report Type: 
  Country: None (occurrence: None)
  Receive Date: 20100604
  Receipt Date: 20100601
  Transmission Date: 20101027
  Serious: Yes (Hospitalization)
  Sender: FDA-Public Use
  Company Number: US-BAYER-201021721NA

PATIENT
  Age: 52 Year
  Sex: Female

DRUGS (8)
  1. AVELOX [Suspect]
     Indication: SINUSITIS
     Route: 042
     Dates: start: 20100301
  2. AVELOX [Suspect]
     Route: 048
  3. ADVAIR DISKUS 100/50 [Concomitant]
  4. SINGULAIR [Concomitant]
  5. ALLEGRA [Concomitant]
  6. ALBUTEROL [Concomitant]
  7. FLONASE [Concomitant]
  8. PREDNISONE TAB [Concomitant]

REACTIONS (2)
  - OESOPHAGEAL DISORDER [None]
  - OROPHARYNGEAL BLISTERING [None]
